FAERS Safety Report 5893913-5 (Version None)
Quarter: 2008Q3

REPORT INFORMATION
  Report Type: 
  Country: None (occurrence: None)
  Receive Date: 20080923
  Receipt Date: 20080912
  Transmission Date: 20090109
  Serious: No
  Sender: FDA-Public Use
  Company Number: US-ELI_LILLY_AND_COMPANY-US200805003747

PATIENT
  Age: 45 Year
  Sex: Male

DRUGS (3)
  1. BYETTA [Suspect]
     Indication: TYPE 2 DIABETES MELLITUS
     Dosage: 5 UG, 2/D
     Route: 058
  2. GLUCOPHAGE [Concomitant]
     Dosage: UNK, UNKNOWN
  3. GLIPIZIDE [Concomitant]
     Dosage: UNK, UNKNOWN

REACTIONS (1)
  - NAUSEA [None]
